FAERS Safety Report 22160724 (Version 1)
Quarter: 2023Q1

REPORT INFORMATION
  Report Type: Spontaneous
  Country: CN (occurrence: CN)
  Receive Date: 20230331
  Receipt Date: 20230331
  Transmission Date: 20230418
  Serious: Yes (Other)
  Sender: FDA-Public Use
  Company Number: CN-GUERBET / FUNDTRIP PHARMACEUTICALS-CN-20230067

PATIENT
  Age: 51 Year
  Sex: Female

DRUGS (3)
  1. LIPIODOL [Suspect]
     Active Substance: ETHIODIZED OIL
     Indication: Transcatheter arterial chemoembolisation
     Dosage: 12 ML OF LIPIODOL MIXED WITH 10 MG OF EPIRUBICIN AND 300-500 UM OF POLYVINYL ALCOHOL (PVA).
     Route: 013
     Dates: start: 20211018, end: 20211018
  2. POLYVINYL ALCOHOL [Concomitant]
     Active Substance: POLYVINYL ALCOHOL
     Indication: Transcatheter arterial chemoembolisation
     Dosage: 12 ML OF LIPIODOL MIXED WITH 10 MG OF EPIRUBICIN AND 300-500 UM OF POLYVINYL ALCOHOL (PVA).
     Route: 013
     Dates: start: 20211018, end: 20211018
  3. EPIRUBICIN [Concomitant]
     Active Substance: EPIRUBICIN
     Indication: Transcatheter arterial chemoembolisation
     Dosage: 12 ML OF LIPIODOL MIXED WITH 10 MG OF EPIRUBICIN AND 300-500 UM OF POLYVINYL ALCOHOL (PVA).
     Route: 013
     Dates: start: 20211018, end: 20211018

REACTIONS (1)
  - Biliary obstruction [Recovering/Resolving]
